FAERS Safety Report 25178092 (Version 1)
Quarter: 2025Q2

REPORT INFORMATION
  Report Type: Spontaneous
  Country: SI (occurrence: SI)
  Receive Date: 20250409
  Receipt Date: 20250409
  Transmission Date: 20250717
  Serious: Yes (Other)
  Sender: BAYER
  Company Number: SI-BAYER-2025A045897

PATIENT
  Age: 81 Year
  Sex: Male

DRUGS (7)
  1. KERENDIA [Suspect]
     Active Substance: FINERENONE
  2. AMLODIPINE\INDAPAMIDE\PERINDOPRIL [Concomitant]
     Active Substance: AMLODIPINE\INDAPAMIDE\PERINDOPRIL
  3. DAPAGLIFLOZIN [Concomitant]
     Active Substance: DAPAGLIFLOZIN
  4. ATORVASTATIN [Concomitant]
     Active Substance: ATORVASTATIN
  5. PANTOPRAZOLE SODIUM [Concomitant]
     Active Substance: PANTOPRAZOLE SODIUM
  6. DUTASTERIDE\TAMSULOSIN [Concomitant]
     Active Substance: DUTASTERIDE\TAMSULOSIN
  7. Amlessini [Concomitant]

REACTIONS (8)
  - Glomerular filtration rate decreased [None]
  - Chronic kidney disease [None]
  - Blood potassium increased [None]
  - Malaise [None]
  - Dizziness [None]
  - Headache [None]
  - Hyponatraemia [None]
  - Hypotension [None]

NARRATIVE: CASE EVENT DATE: 20250115
